FAERS Safety Report 4832417-5 (Version None)
Quarter: 2005Q4

REPORT INFORMATION
  Report Type: 
  Country: None (occurrence: None)
  Receive Date: 20051117
  Receipt Date: 20051110
  Transmission Date: 20060501
  Serious: Yes (Other)
  Sender: FDA-Public Use
  Company Number: 219417

PATIENT
  Age: 61 Year
  Sex: Male

DRUGS (4)
  1. AVASTIN [Suspect]
     Indication: PANCREATIC CARCINOMA
     Dosage: 10 MG/KG, DAYS 1 + 15, INTRAVENOUS
     Route: 042
     Dates: start: 20050323, end: 20050907
  2. ERLOTINIB (ERLOTINIB) TABLET, 150MG [Suspect]
     Indication: PANCREATIC CARCINOMA
     Dosage: 150 MG,
     Dates: end: 20050901
  3. GEMCITABINE GEMCITABINE) [Suspect]
     Indication: PANCREATIC CARCINOMA
     Dosage: 1000 MG/M2, INTAVENOUS
     Route: 042
     Dates: end: 20050901
  4. DIURETICS (DIURETICS) [Concomitant]

REACTIONS (3)
  - PROTEINURIA [None]
  - RENAL FAILURE [None]
  - THROMBOTIC MICROANGIOPATHY [None]
